FAERS Safety Report 6428805-6 (Version None)
Quarter: 2009Q4

REPORT INFORMATION
  Report Type: 
  Country: None (occurrence: None)
  Receive Date: 20091105
  Receipt Date: 20091026
  Transmission Date: 20100525
  Serious: Yes (Other)
  Sender: FDA-Public Use
  Company Number: CHPA2009US21321

PATIENT
  Sex: Male

DRUGS (10)
  1. VOLTAREN [Suspect]
     Indication: OSTEOARTHRITIS
     Dosage: UNK, QID
     Route: 061
     Dates: start: 20081118
  2. LISINOPRIL [Concomitant]
     Dosage: 5 MG, BID
  3. PRAVACHOL [Concomitant]
     Dosage: 10 MG, QHS
  4. BABY ASPIRIN [Concomitant]
     Dosage: 81 MG, QD
  5. BACTRIM [Concomitant]
  6. LANTUS [Concomitant]
  7. HUMALOG [Concomitant]
  8. HYDROCHLOROTHIAZIDE [Concomitant]
     Dosage: 12.5 MG, QD
  9. MULTI-VITAMINS [Concomitant]
  10. TYLENOL [Concomitant]
     Dosage: UNK, HS

REACTIONS (18)
  - BIOPSY SKIN ABNORMAL [None]
  - BLISTER [None]
  - CHILLBLAINS [None]
  - DERMATITIS [None]
  - ECCHYMOSIS [None]
  - EPIDERMAL NECROSIS [None]
  - EXOSTOSIS [None]
  - GAIT DISTURBANCE [None]
  - JOINT ANKYLOSIS [None]
  - NAIL DISORDER [None]
  - OEDEMA PERIPHERAL [None]
  - PERIPHERAL VASCULAR DISORDER [None]
  - RADIAL PULSE DECREASED [None]
  - RASH PUSTULAR [None]
  - SKIN DISCOLOURATION [None]
  - SKIN EXFOLIATION [None]
  - THROMBOSIS [None]
  - VASCULITIS [None]
